FAERS Safety Report 10063842 (Version 7)
Quarter: 2014Q2

REPORT INFORMATION
  Report Type: Report from Study
  Country: US (occurrence: US)
  Receive Date: 20140408
  Receipt Date: 20140630
  Transmission Date: 20141212
  Serious: Yes (Hospitalization)
  Sender: FDA-Public Use
  Company Number: US-BIOGENIDEC-2014BI031033

PATIENT
  Age: 61 Year
  Sex: Female

DRUGS (9)
  1. AVONEX [Suspect]
     Indication: MULTIPLE SCLEROSIS
     Route: 030
  2. AVONEX [Suspect]
     Indication: MULTIPLE SCLEROSIS
     Route: 030
     Dates: start: 20031015
  3. AVONEX [Suspect]
     Indication: MULTIPLE SCLEROSIS
     Route: 030
     Dates: start: 20051015, end: 20100601
  4. AVONEX [Suspect]
     Indication: MULTIPLE SCLEROSIS
     Route: 030
     Dates: start: 20100717
  5. AVONEX [Suspect]
     Indication: MULTIPLE SCLEROSIS
     Route: 030
     Dates: start: 20100721
  6. AVONEX [Suspect]
     Indication: MULTIPLE SCLEROSIS
     Route: 030
     Dates: start: 20130425
  7. LEVEMIR [Concomitant]
  8. METOPROLOL SUCCINATE ER [Concomitant]
  9. ATORVASTATIN CALCIUM [Concomitant]

REACTIONS (5)
  - Myocardial infarction [Recovered/Resolved]
  - Drug dose omission [Unknown]
  - Gait disturbance [Recovered/Resolved]
  - Influenza like illness [Unknown]
  - Heart rate increased [Unknown]
